FAERS Safety Report 5215128-6 (Version None)
Quarter: 2007Q1

REPORT INFORMATION
  Report Type: 
  Country: None (occurrence: None)
  Receive Date: 20070122
  Receipt Date: 20070112
  Transmission Date: 20070707
  Serious: Yes (Hospitalization)
  Sender: FDA-Public Use
  Company Number: HU-PFIZER INC-2007003513

PATIENT
  Sex: Male

DRUGS (4)
  1. DOXAZOSIN MESYLATE [Suspect]
     Indication: HYPERTENSION
     Route: 048
     Dates: start: 20061228, end: 20061228
  2. RAMIPRIL [Concomitant]
     Route: 048
  3. FAMOTIDINE [Concomitant]
     Route: 048
     Dates: start: 20061228, end: 20061228
  4. PANCREATIN TRIPLE STRENGTH CAP [Concomitant]
     Route: 048
     Dates: start: 20061229, end: 20061229

REACTIONS (1)
  - ANAPHYLACTIC REACTION [None]
